FAERS Safety Report 10246721 (Version 1)
Quarter: 2014Q1

REPORT INFORMATION
  Report Type: Spontaneous
  Country: US (occurrence: None)
  Receive Date: 20140306
  Receipt Date: 20140306
  Transmission Date: 20141002
  Serious: Yes (Hospitalization, Other)
  Sender: FDA-Public Use
  Company Number: 163-21880-13042855

PATIENT
  Age: 68 Year
  Sex: Male
  Weight: 88.45 kg

DRUGS (3)
  1. REVLIMID (LENALIDOMIDE) (25 MILLIGRAM, CAPSULES) [Suspect]
     Indication: PLASMA CELL MYELOMA
     Dosage: 25 MG 14 IN 14 D, PO
     Route: 048
     Dates: start: 20130318, end: 20130403
  2. ASA (ACETYLSALICYLIC ACID) (UNKNOWN) [Concomitant]
  3. COUMADIN (WARFARIN SODIUM) (UNKNOWN) [Concomitant]

REACTIONS (3)
  - Deep vein thrombosis [None]
  - Haemoglobin decreased [None]
  - Renal failure acute [None]
